FAERS Safety Report 4544000-X (Version None)
Quarter: 2004Q4

REPORT INFORMATION
  Report Type: 
  Country: None (occurrence: None)
  Receive Date: 20041229
  Receipt Date: 20041229
  Transmission Date: 20050328
  Serious: Yes (Life-Threatening, Hospitalization)
  Sender: FDA-Public Use
  Company Number: None

PATIENT
  Age: 57 Year
  Sex: Male
  Weight: 88.1 kg

DRUGS (5)
  1. INTERFERON ALFA-2B [Suspect]
  2. LISINOPRIL [Suspect]
  3. RIBAVIRIN [Suspect]
  4. OMEPRAZOLE [Suspect]
  5. VENLAFAXINE HCL [Suspect]

REACTIONS (1)
  - ANAEMIA [None]
